FAERS Safety Report 20440542 (Version 1)
Quarter: 2022Q1

REPORT INFORMATION
  Report Type: Spontaneous
  Country: US (occurrence: None)
  Receive Date: 20220207
  Receipt Date: 20220207
  Transmission Date: 20220423
  Serious: No
  Sender: FDA-Public Use
  Company Number: None

PATIENT
  Age: 86 Year
  Sex: Female

DRUGS (1)
  1. NINLARO [Suspect]
     Active Substance: IXAZOMIB CITRATE
     Indication: Lung neoplasm
     Dosage: FREQUENCY : ONCE;?
     Route: 048
     Dates: start: 20211201

REACTIONS (1)
  - General physical health deterioration [None]

NARRATIVE: CASE EVENT DATE: 20220207
